FAERS Safety Report 19886029 (Version 4)
Quarter: 2021Q4

REPORT INFORMATION
  Report Type: Spontaneous
  Country: US (occurrence: US)
  Receive Date: 20210927
  Receipt Date: 20211018
  Transmission Date: 20220303
  Serious: Yes (Other)
  Sender: FDA-Public Use
  Company Number: US-BIOGEN-2021BI01050375

PATIENT
  Age: 61 Year
  Sex: Male

DRUGS (9)
  1. VUMERITY [Suspect]
     Active Substance: DIROXIMEL FUMARATE
     Indication: Multiple sclerosis
     Route: 065
     Dates: end: 20200505
  2. VUMERITY [Suspect]
     Active Substance: DIROXIMEL FUMARATE
     Route: 048
     Dates: start: 202105
  3. VUMERITY [Suspect]
     Active Substance: DIROXIMEL FUMARATE
     Route: 048
     Dates: start: 202107
  4. VUMERITY [Suspect]
     Active Substance: DIROXIMEL FUMARATE
     Route: 065
     Dates: start: 20210601
  5. VUMERITY [Suspect]
     Active Substance: DIROXIMEL FUMARATE
     Route: 048
     Dates: start: 20210601
  6. VUMERITY [Suspect]
     Active Substance: DIROXIMEL FUMARATE
     Route: 048
  7. VITAMIN D [Concomitant]
     Active Substance: VITAMIN D NOS
     Indication: Product used for unknown indication
     Route: 065
  8. ASPIRIN [Concomitant]
     Active Substance: ASPIRIN
     Indication: Product used for unknown indication
     Route: 065
  9. LOTENSIN [Concomitant]
     Active Substance: BENAZEPRIL HYDROCHLORIDE
     Indication: Product used for unknown indication
     Route: 065

REACTIONS (2)
  - Deafness unilateral [Not Recovered/Not Resolved]
  - Ear disorder [Unknown]

NARRATIVE: CASE EVENT DATE: 20210914
